FAERS Safety Report 8209946-X (Version None)
Quarter: 2012Q1

REPORT INFORMATION
  Report Type: 
  Country: None (occurrence: None)
  Receive Date: 20120314
  Receipt Date: 20111019
  Transmission Date: 20120608
  Serious: No
  Sender: FDA-Public Use
  Company Number: US-ASTRAZENECA-2010SE21013

PATIENT
  Age: 56 Year
  Sex: Female

DRUGS (2)
  1. TOPROL-XL [Suspect]
     Route: 048
  2. CRESTOR [Suspect]
     Route: 048

REACTIONS (7)
  - CHEST PAIN [None]
  - GASTROENTERITIS VIRAL [None]
  - VOMITING [None]
  - DRUG DOSE OMISSION [None]
  - CARDIAC DISORDER [None]
  - MALAISE [None]
  - INCORRECT DOSE ADMINISTERED [None]
